FAERS Safety Report 16371720 (Version 1)
Quarter: 2019Q2

REPORT INFORMATION
  Report Type: Spontaneous
  Country: US (occurrence: US)
  Receive Date: 20190424
  Receipt Date: 20190424
  Transmission Date: 20190711
  Serious: No
  Sender: FDA-Public Use
  Company Number: None

PATIENT
  Age: 67 Year
  Sex: Female

DRUGS (3)
  1. IBRANCE [Suspect]
     Active Substance: PALBOCICLIB
     Route: 048
     Dates: start: 201904
  2. METFORMIN [Concomitant]
     Active Substance: METFORMIN HYDROCHLORIDE
  3. FASLODEX [Concomitant]
     Active Substance: FULVESTRANT

REACTIONS (3)
  - Arthralgia [None]
  - Chills [None]
  - Abdominal pain upper [None]

NARRATIVE: CASE EVENT DATE: 20190424
